FAERS Safety Report 10442441 (Version 2)
Quarter: 2014Q3

REPORT INFORMATION
  Report Type: Spontaneous
  Country: US (occurrence: None)
  Receive Date: 20140908
  Receipt Date: 20140918
  Transmission Date: 20150326
  Serious: Yes (Other)
  Sender: FDA-Public Use
  Company Number: 2014-US-009752

PATIENT
  Age: 37 Year
  Sex: Male

DRUGS (2)
  1. XYREM [Suspect]
     Active Substance: SODIUM OXYBATE
     Indication: NARCOLEPSY
     Route: 048
     Dates: start: 201407, end: 201408
  2. XYREM [Suspect]
     Active Substance: SODIUM OXYBATE
     Indication: CATAPLEXY
     Route: 048
     Dates: start: 201407, end: 201408

REACTIONS (5)
  - Weight decreased [None]
  - Hypoaesthesia [None]
  - Therapeutic response decreased [None]
  - Feeling abnormal [None]
  - Mental disorder [None]

NARRATIVE: CASE EVENT DATE: 2014
